FAERS Safety Report 9311196 (Version 2)
Quarter: 2014Q2

REPORT INFORMATION
  Report Type: Report from Study
  Country: US (occurrence: US)
  Receive Date: 20130528
  Receipt Date: 20140523
  Transmission Date: 20141212
  Serious: Yes (Hospitalization)
  Sender: FDA-Public Use
  Company Number: US-JNJFOC-20130515767

PATIENT
  Age: 18 Year
  Sex: Male
  Weight: 67.1 kg

DRUGS (4)
  1. REMICADE [Suspect]
     Indication: CROHN^S DISEASE
     Route: 042
     Dates: start: 20110509
  2. AZATHIOPRINE [Concomitant]
     Route: 065
  3. POLYETHYLENE GLYCOL 3350 [Concomitant]
     Route: 065
  4. ZANTAC [Concomitant]
     Route: 065

REACTIONS (1)
  - Crohn^s disease [Recovered/Resolved]
